FAERS Safety Report 7644039-1 (Version None)
Quarter: 2011Q3

REPORT INFORMATION
  Report Type: 
  Country: None (occurrence: None)
  Receive Date: 20110729
  Receipt Date: 20110727
  Transmission Date: 20111222
  Serious: Yes (Other)
  Sender: FDA-Public Use
  Company Number: JP-SANOFI-AVENTIS-2011SA048332

PATIENT
  Age: 73 Year
  Sex: Female

DRUGS (6)
  1. ARAVA [Suspect]
     Route: 048
     Dates: start: 20100422, end: 20100512
  2. MUCOSTA [Concomitant]
     Indication: GASTRITIS PROPHYLAXIS
     Route: 048
     Dates: start: 20100405, end: 20100512
  3. LOXONIN [Suspect]
     Route: 062
     Dates: start: 20100405
  4. RABEPRAZOLE SODIUM [Concomitant]
     Indication: GASTRITIS PROPHYLAXIS
     Route: 048
     Dates: start: 20100405
  5. LOXONIN [Suspect]
     Indication: RHEUMATOID ARTHRITIS
     Route: 048
     Dates: start: 20100405, end: 20100512
  6. ARAVA [Suspect]
     Indication: RHEUMATOID ARTHRITIS
     Route: 048
     Dates: start: 20100324, end: 20100421

REACTIONS (5)
  - BLOOD ALKALINE PHOSPHATASE INCREASED [None]
  - ALANINE AMINOTRANSFERASE INCREASED [None]
  - ASPARTATE AMINOTRANSFERASE INCREASED [None]
  - GAMMA-GLUTAMYLTRANSFERASE INCREASED [None]
  - BLOOD LACTATE DEHYDROGENASE INCREASED [None]
